FAERS Safety Report 6435428-1 (Version None)
Quarter: 2009Q4

REPORT INFORMATION
  Report Type: 
  Country: None (occurrence: None)
  Receive Date: 20091106
  Receipt Date: 20091102
  Transmission Date: 20100525
  Serious: No
  Sender: FDA-Public Use
  Company Number: 20097609

PATIENT
  Age: 50 Year
  Sex: Male

DRUGS (3)
  1. LIORESAL [Suspect]
     Indication: MUSCLE SPASTICITY
     Dosage: MCG, DAILY, INTRATHECAL
     Route: 037
  2. BUPIVACAINE [Concomitant]
  3. KETAMINE HCL [Concomitant]

REACTIONS (3)
  - ISCHAEMIA [None]
  - OVERDOSE [None]
  - SOMNOLENCE [None]
